FAERS Safety Report 9454517 (Version 2)
Quarter: 2013Q4

REPORT INFORMATION
  Report Type: Spontaneous
  Country: JP (occurrence: JP)
  Receive Date: 20130812
  Receipt Date: 20131106
  Transmission Date: 20140711
  Serious: Yes (Life-Threatening, Hospitalization)
  Sender: FDA-Public Use
  Company Number: JP-GLAXOSMITHKLINE-B0868042A

PATIENT
  Age: 52 Year
  Sex: Female

DRUGS (10)
  1. ZANTAC [Suspect]
     Indication: PREMEDICATION
     Route: 042
  2. ZANTAC [Suspect]
     Indication: PREMEDICATION
     Dosage: 50MG PER DAY
     Route: 042
     Dates: start: 20121109, end: 20121109
  3. ZANTAC [Suspect]
     Indication: PREMEDICATION
     Dosage: 50MG PER DAY
     Route: 042
     Dates: start: 20121130, end: 20121130
  4. ZANTAC [Suspect]
     Indication: PREMEDICATION
     Dosage: 50MG PER DAY
     Route: 042
     Dates: start: 20130118, end: 20130118
  5. DECADRON [Concomitant]
     Indication: PREMEDICATION
     Dosage: 4.95MG PER DAY
     Dates: start: 20121109, end: 20130816
  6. SEROTONE [Concomitant]
     Indication: PREMEDICATION
     Dosage: 10MG PER DAY
     Dates: start: 20121109, end: 20121109
  7. RESTAMIN [Concomitant]
     Indication: PREMEDICATION
     Dosage: 50MG PER DAY
     Route: 048
     Dates: start: 20121109, end: 20121109
  8. EMEND [Concomitant]
     Indication: PREMEDICATION
     Dosage: 125MG PER DAY
     Route: 048
     Dates: start: 20121109, end: 20121109
  9. PACLITAXEL [Concomitant]
  10. CARBOPLATIN [Concomitant]

REACTIONS (7)
  - Anaphylactic shock [Recovered/Resolved]
  - Anaphylactic reaction [Recovered/Resolved]
  - Loss of consciousness [Recovering/Resolving]
  - Cardio-respiratory arrest [Recovering/Resolving]
  - Blood pressure decreased [Recovering/Resolving]
  - Generalised oedema [Recovering/Resolving]
  - Hypersensitivity [Unknown]
